FAERS Safety Report 6999020-2 (Version None)
Quarter: 2010Q3

REPORT INFORMATION
  Report Type: 
  Country: None (occurrence: None)
  Receive Date: 20100920
  Receipt Date: 20100708
  Transmission Date: 20110219
  Serious: No
  Sender: FDA-Public Use
  Company Number: US-ASTRAZENECA-2010SE31819

PATIENT
  Age: 38 Year
  Sex: Male

DRUGS (4)
  1. SEROQUEL XR [Suspect]
     Indication: AFFECTIVE DISORDER
     Route: 048
     Dates: start: 20100101, end: 20100706
  2. SEROQUEL XR [Suspect]
     Indication: PSYCHOTIC DISORDER
     Route: 048
     Dates: start: 20100101, end: 20100706
  3. SEROQUEL XR [Suspect]
     Route: 048
     Dates: start: 20100706
  4. SEROQUEL XR [Suspect]
     Route: 048
     Dates: start: 20100706

REACTIONS (3)
  - MUSCULOSKELETAL STIFFNESS [None]
  - TONGUE DISORDER [None]
  - TREMOR [None]
